FAERS Safety Report 5757824-8 (Version None)
Quarter: 2008Q2

REPORT INFORMATION
  Report Type: 
  Country: None (occurrence: None)
  Receive Date: 20080603
  Receipt Date: 20080526
  Transmission Date: 20081010
  Serious: Yes (Hospitalization, Other)
  Sender: FDA-Public Use
  Company Number: PHNU2008DE01897

PATIENT
  Sex: Female

DRUGS (4)
  1. METHERGINE [Suspect]
     Indication: UTERINE DILATION AND CURETTAGE
     Dosage: UNK
     Dates: start: 20080415
  2. ETHINYL ESTRADIOL TAB [Concomitant]
     Dosage: 25 MG/DAY
     Dates: start: 20080415
  3. PRIMOLUT-NOR [Concomitant]
     Dosage: 5 MG/DAY
     Dates: start: 20080415
  4. UNACID [Concomitant]
     Dosage: UNK
     Dates: start: 20080428, end: 20080430

REACTIONS (5)
  - CARDIAC DISORDER [None]
  - ERGOT POISONING [None]
  - HYPERTENSION [None]
  - HYPOAESTHESIA [None]
  - PARAESTHESIA [None]
